FAERS Safety Report 25270224 (Version 2)
Quarter: 2025Q2

REPORT INFORMATION
  Report Type: Report from Study
  Country: KR (occurrence: KR)
  Receive Date: 20250505
  Receipt Date: 20250617
  Transmission Date: 20250717
  Serious: Yes (Hospitalization, Other)
  Sender: NOVARTIS
  Company Number: KR-002147023-NVSC2021KR279968

PATIENT
  Age: 52 Year
  Sex: Female
  Weight: 57 kg

DRUGS (18)
  1. KISQALI [Suspect]
     Active Substance: RIBOCICLIB SUCCINATE
     Indication: Hormone receptor positive HER2 negative breast cancer
     Dosage: 600 MG, QD
     Route: 048
     Dates: start: 20211018, end: 20211107
  2. KISQALI [Suspect]
     Active Substance: RIBOCICLIB SUCCINATE
     Dosage: 400 MG, QD
     Route: 048
     Dates: start: 20211117, end: 20211201
  3. Bretra [Concomitant]
     Indication: Hormone therapy
     Dosage: 2.5 MG, QD
     Route: 048
     Dates: start: 20211018, end: 20211116
  4. Bretra [Concomitant]
     Dosage: 2.5 MG, QD
     Route: 048
     Dates: start: 20211117, end: 20211201
  5. Bretra [Concomitant]
     Dosage: 2.5 MG, QD
     Route: 048
     Dates: start: 20211216
  6. Bretra [Concomitant]
     Dosage: 2.5 MG, QD
     Route: 048
     Dates: start: 20211018, end: 20211116
  7. Bretra [Concomitant]
     Dosage: 2.5 MG, QD
     Route: 048
     Dates: start: 20211117, end: 20211201
  8. Bretra [Concomitant]
     Dosage: 2.5 MG, QD
     Route: 048
     Dates: start: 20211216
  9. PYRIDOXINE HYDROCHLORIDE [Concomitant]
     Active Substance: PYRIDOXINE HYDROCHLORIDE
     Indication: Prophylaxis
     Dosage: 2 ML, QD
     Route: 042
     Dates: start: 20211202, end: 20211202
  10. ASCORBIC ACID [Concomitant]
     Active Substance: ASCORBIC ACID
     Indication: Prophylaxis
     Dosage: 300 MG, QD
     Route: 048
     Dates: start: 20211202, end: 20211202
  11. ASCORBIC ACID [Concomitant]
     Active Substance: ASCORBIC ACID
     Dosage: 300 MG, QD
     Route: 042
     Dates: start: 20211202, end: 20211202
  12. LACTULOSE [Concomitant]
     Active Substance: LACTULOSE
     Indication: Prophylaxis
     Dosage: 15 ML, QD
     Route: 048
     Dates: start: 20211206, end: 20211206
  13. MOSAPRIDE CITRATE [Concomitant]
     Active Substance: MOSAPRIDE CITRATE
     Indication: Prophylaxis
     Dosage: 5 MG, QD
     Route: 048
     Dates: start: 20211209
  14. Almagel [Concomitant]
     Indication: Prophylaxis
     Dosage: 15 ML QD (SUSPENSION)
     Route: 048
     Dates: start: 20211210
  15. PHENIRAMINE [Concomitant]
     Active Substance: PHENIRAMINE
     Indication: Prophylaxis
     Dosage: 4 MG, QD
     Route: 042
     Dates: start: 20211215, end: 20211215
  16. DEXAMETHASONE SODIUM PHOSPHATE [Concomitant]
     Active Substance: DEXAMETHASONE SODIUM PHOSPHATE
     Indication: Prophylaxis
     Dosage: 5 MG, QD
     Route: 042
     Dates: start: 20211215, end: 20211215
  17. BISOPROLOL FUMARATE [Concomitant]
     Active Substance: BISOPROLOL FUMARATE
     Indication: Electrocardiogram QT prolonged
     Dosage: 2.5 MG, QD
     Route: 048
     Dates: start: 20211117
  18. BISOPROLOL FUMARATE [Concomitant]
     Active Substance: BISOPROLOL FUMARATE
     Indication: Ventricular tachycardia
     Dosage: 2.5 MG, QD
     Route: 048
     Dates: start: 20211220

REACTIONS (6)
  - Aspartate aminotransferase increased [Recovered/Resolved with Sequelae]
  - Alanine aminotransferase increased [Recovered/Resolved with Sequelae]
  - Leukopenia [Recovered/Resolved]
  - Leukopenia [Recovered/Resolved]
  - Aspartate aminotransferase increased [Recovered/Resolved]
  - Alanine aminotransferase increased [Recovered/Resolved]

NARRATIVE: CASE EVENT DATE: 20211101
